FAERS Safety Report 6784840-X (Version None)
Quarter: 2010Q2

REPORT INFORMATION
  Report Type: 
  Country: None (occurrence: None)
  Receive Date: 20100622
  Receipt Date: 20090904
  Transmission Date: 20101027
  Serious: Yes (Death, Hospitalization)
  Sender: FDA-Public Use
  Company Number: CA-GENZYME-POMP-1000723

PATIENT
  Sex: Female

DRUGS (1)
  1. MYOZYME [Suspect]
     Indication: GLYCOGEN STORAGE DISEASE TYPE II
     Dosage: 20 MG/KG, Q2W
     Route: 042
     Dates: start: 20081218, end: 20090522

REACTIONS (4)
  - BRADYCARDIA [None]
  - CARDIAC ARREST [None]
  - RESPIRATORY DISTRESS [None]
  - RESPIRATORY TRACT INFECTION [None]
